FAERS Safety Report 4368971-X (Version None)
Quarter: 2004Q2

REPORT INFORMATION
  Report Type: 
  Country: None (occurrence: None)
  Receive Date: 20040525
  Receipt Date: 20040514
  Transmission Date: 20050107
  Serious: Yes (Hospitalization, Other)
  Sender: FDA-Public Use
  Company Number: 2004032769

PATIENT
  Sex: Female
  Weight: 127.0072 kg

DRUGS (8)
  1. NEURONTIN [Suspect]
     Indication: DIABETIC NEUROPATHY
     Dosage: 1600 MG (400 MG, QID INTERVAL: EVERY DAY), ORAL
     Route: 048
     Dates: start: 20010101
  2. METFORMIN HYDROCHLORIDE [Concomitant]
  3. INSULIN [Concomitant]
  4. RAMIPRIL [Concomitant]
  5. POTASSIUM CHLORIDE [Concomitant]
  6. MULTIVITAMINS (ASCORBIC ACID, ERGOCALCIFEROL, FOLIC ACID, NICOTINAMIDE [Concomitant]
  7. CALCIUM [Concomitant]
  8. FUROSEMIDE [Concomitant]

REACTIONS (5)
  - DELIRIUM [None]
  - EATING DISORDER [None]
  - PAIN IN EXTREMITY [None]
  - STAPHYLOCOCCAL INFECTION [None]
  - WEIGHT DECREASED [None]
